FAERS Safety Report 4922139-4 (Version None)
Quarter: 2006Q1

REPORT INFORMATION
  Report Type: 
  Country: None (occurrence: None)
  Receive Date: 20060224
  Receipt Date: 20060216
  Transmission Date: 20060701
  Serious: Yes (Hospitalization)
  Sender: FDA-Public Use
  Company Number: US-JNJFOC-20060201177

PATIENT
  Sex: Female
  Weight: 89.36 kg

DRUGS (12)
  1. EXTRA STRENGTH TYLENOL [Suspect]
  2. EXTRA STRENGTH TYLENOL [Suspect]
     Indication: DRUG USE FOR UNKNOWN INDICATION
  3. ASPIRIN [Suspect]
     Route: 048
  4. AMIODARONE [Concomitant]
  5. ACEBUTOLOL [Concomitant]
  6. ZOCOR [Concomitant]
  7. MECLIZINE [Concomitant]
  8. NORVASC [Concomitant]
  9. COUMADIN [Concomitant]
  10. FLONASE [Concomitant]
  11. IMDUR [Concomitant]
  12. TORSEMIDE [Concomitant]

REACTIONS (4)
  - CARDIAC PACEMAKER INSERTION [None]
  - CONSTIPATION [None]
  - NAUSEA [None]
  - VOMITING [None]
